FAERS Safety Report 8437720 (Version 3)
Quarter: 2012Q4

REPORT INFORMATION
  Report Type: 
  Country: JP (occurrence: JP)
  Receive Date: 20120302
  Receipt Date: 20120917
  Transmission Date: 20130627
  Serious: Yes (Death)
  Sender: FDA-Public Use
  Company Number: JP-SANOFI-AVENTIS-2012SA008493

PATIENT
  Age: 74 Year
  Sex: Male

DRUGS (2)
  1. TAXOTERE [Suspect]
     Indication: OESOPHAGEAL CARCINOMA
     Dosage: once per two weeks, 50 mg/m2
     Route: 042
     Dates: start: 20080930, end: 20081029
  2. THERAPEUTIC RADIOPHARMACEUTICALS [Suspect]
     Indication: OESOPHAGEAL CARCINOMA
     Dosage: median value for total dose of radiation: 60 Gy
     Route: 065

REACTIONS (1)
  - Interstitial lung disease [Fatal]
